FAERS Safety Report 19538289 (Version 1)
Quarter: 2021Q3

REPORT INFORMATION
  Report Type: Spontaneous
  Country: FR (occurrence: FR)
  Receive Date: 20210713
  Receipt Date: 20210713
  Transmission Date: 20211014
  Serious: Yes (Hospitalization)
  Sender: FDA-Public Use
  Company Number: FR-VALIDUS PHARMACEUTICALS LLC-VDP-2021-000108

PATIENT

DRUGS (1)
  1. CEFOTAXIME SODIUM [Suspect]
     Active Substance: CEFOTAXIME SODIUM
     Indication: MENINGITIS PNEUMOCOCCAL
     Route: 065

REACTIONS (4)
  - Drug level increased [Unknown]
  - Electroencephalogram abnormal [Unknown]
  - Neurological decompensation [Unknown]
  - Toxicity to various agents [Unknown]
